FAERS Safety Report 9296045 (Version 3)
Quarter: 2013Q3

REPORT INFORMATION
  Report Type: Spontaneous
  Country: US (occurrence: US)
  Receive Date: 20130517
  Receipt Date: 20130711
  Transmission Date: 20140515
  Serious: Yes (Hospitalization, Other)
  Sender: FDA-Public Use
  Company Number: GXBR2013US001046

PATIENT
  Age: 36 Year
  Sex: Female
  Weight: 65.76 kg

DRUGS (2)
  1. AMOXICILLIN CAPSULES, USP [Suspect]
     Indication: PHARYNGITIS STREPTOCOCCAL
     Dosage: 500 MG, TID
     Route: 048
     Dates: start: 20130429, end: 20130503
  2. ECHINACEA [Concomitant]
     Dosage: UNK DF, UNK

REACTIONS (23)
  - Rash morbilliform [Recovering/Resolving]
  - Dehydration [Unknown]
  - Leukocytosis [Recovering/Resolving]
  - Bandaemia [Unknown]
  - Pyrexia [Recovering/Resolving]
  - Rash macular [Recovering/Resolving]
  - Skin exfoliation [Not Recovered/Not Resolved]
  - Swelling face [Recovering/Resolving]
  - Dermatitis [Unknown]
  - Blister [Unknown]
  - Rash pruritic [Not Recovered/Not Resolved]
  - Stomatitis [Unknown]
  - Nausea [Unknown]
  - Vomiting [Unknown]
  - Local swelling [Recovering/Resolving]
  - Diarrhoea [Unknown]
  - Abdominal pain [Unknown]
  - Migraine [Unknown]
  - Photosensitivity reaction [Not Recovered/Not Resolved]
  - Asthenia [Not Recovered/Not Resolved]
  - Decreased appetite [Unknown]
  - Dizziness [Unknown]
  - Blood pressure decreased [Unknown]
